FAERS Safety Report 15681867 (Version 1)
Quarter: 2018Q4

REPORT INFORMATION
  Report Type: Spontaneous
  Country: US (occurrence: US)
  Receive Date: 20181203
  Receipt Date: 20181203
  Transmission Date: 20190205
  Serious: Yes (Death)
  Sender: FDA-Public Use
  Company Number: None

PATIENT
  Age: 60 Year
  Sex: Male
  Weight: 157.5 kg

DRUGS (1)
  1. JARDIANCE [Suspect]
     Active Substance: EMPAGLIFLOZIN
     Indication: DIABETES MELLITUS
     Route: 048

REACTIONS (7)
  - Fournier^s gangrene [None]
  - Organ failure [None]
  - Vomiting [None]
  - Necrotising fasciitis [None]
  - Groin pain [None]
  - White blood cell count increased [None]
  - Mental status changes [None]

NARRATIVE: CASE EVENT DATE: 20181117
